FAERS Safety Report 23642200 (Version 2)
Quarter: 2024Q2

REPORT INFORMATION
  Report Type: Spontaneous
  Country: DE (occurrence: DE)
  Receive Date: 20240318
  Receipt Date: 20240403
  Transmission Date: 20240716
  Serious: Yes (Life-Threatening, Other)
  Sender: FDA-Public Use
  Company Number: DE-TEVA-VS-3169389

PATIENT
  Age: 65 Year
  Sex: Male

DRUGS (17)
  1. IRINOTECAN [Suspect]
     Active Substance: IRINOTECAN
     Indication: Colorectal cancer stage II
     Dosage: AFTER A NEW CATHETER WAS IMPLANTED, HE WAS RECHALLENGED
     Route: 065
     Dates: start: 201801
  2. IRINOTECAN [Suspect]
     Active Substance: IRINOTECAN
     Indication: Colorectal cancer stage II
     Dosage: AS A PART OF FOLFIRI REGIMEN
     Route: 065
     Dates: start: 201611
  3. METFORMIN [Concomitant]
     Active Substance: METFORMIN HYDROCHLORIDE
     Indication: Type 2 diabetes mellitus
     Route: 065
  4. TIPIRACIL HYDROCHLORIDE\TRIFLURIDINE [Suspect]
     Active Substance: TIPIRACIL HYDROCHLORIDE\TRIFLURIDINE
     Indication: Colorectal cancer stage II
     Route: 065
     Dates: start: 201907
  5. BEVACIZUMAB [Suspect]
     Active Substance: BEVACIZUMAB
     Indication: Colorectal cancer stage II
     Dosage: AFTER A NEW CATHETER WAS IMPLANTED, HE WAS RECHALLENGED
     Route: 065
     Dates: start: 201801
  6. BEVACIZUMAB [Suspect]
     Active Substance: BEVACIZUMAB
     Indication: Colorectal cancer stage II
     Route: 065
     Dates: start: 2017
  7. BEVACIZUMAB [Suspect]
     Active Substance: BEVACIZUMAB
     Indication: Colorectal cancer stage II
     Dosage: AS A PART OF FOLFIRI REGIMEN
     Route: 065
     Dates: start: 201611
  8. INSULIN NOS [Concomitant]
     Active Substance: INSULIN NOS
     Indication: Diabetes mellitus
     Route: 065
     Dates: start: 2017
  9. FLUOROURACIL [Suspect]
     Active Substance: FLUOROURACIL
     Indication: Colorectal cancer stage II
     Dosage: AFTER A NEW CATHETER WAS IMPLANTED, HE WAS RECHALLENGED
     Route: 065
     Dates: start: 201801
  10. FLUOROURACIL [Suspect]
     Active Substance: FLUOROURACIL
     Indication: Colorectal cancer stage II
     Dosage: AFTER A NEW CATHETER WAS IMPLANTED, HE WAS RECHALLENGED
     Route: 065
     Dates: start: 201801
  11. FLUOROURACIL [Suspect]
     Active Substance: FLUOROURACIL
     Indication: Colorectal cancer stage II
     Dosage: AS A PART OF FOLFIRI REGIMEN
     Route: 065
     Dates: start: 201611
  12. FLUOROURACIL [Suspect]
     Active Substance: FLUOROURACIL
     Indication: Colorectal cancer stage II
     Dosage: CONTINUOUS INFUSION FOR 42H
     Route: 050
     Dates: start: 201611
  13. FLUOROURACIL [Suspect]
     Active Substance: FLUOROURACIL
     Indication: Colorectal cancer stage II
     Dosage: FUFA REGIMEN- CONTINUOUS INFUSION FOR 42 H
     Route: 050
     Dates: start: 2017
  14. LEUCOVORIN [Suspect]
     Active Substance: LEUCOVORIN\LEUCOVORIN CALCIUM
     Indication: Colorectal cancer stage II
     Dosage: FUFA REGIMEN
     Route: 065
     Dates: start: 2017
  15. LEUCOVORIN [Suspect]
     Active Substance: LEUCOVORIN\LEUCOVORIN CALCIUM
     Indication: Colorectal cancer stage II
     Dosage: AFTER A NEW CATHETER WAS IMPLANTED, HE WAS RECHALLENGED
     Route: 065
     Dates: start: 201801
  16. LEUCOVORIN [Suspect]
     Active Substance: LEUCOVORIN\LEUCOVORIN CALCIUM
     Indication: Colorectal cancer stage II
     Dosage: AS A PART OF FOLFIRI REGIMEN
     Route: 065
     Dates: start: 201611
  17. DEXAMETHASONE [Suspect]
     Active Substance: DEXAMETHASONE
     Indication: Premedication
     Route: 065
     Dates: start: 2016

REACTIONS (6)
  - Diabetes mellitus [Unknown]
  - Anal inflammation [Unknown]
  - Neutropenia [Unknown]
  - Device related infection [Recovered/Resolved]
  - Anaemia [Recovering/Resolving]
  - Stomatitis [Unknown]

NARRATIVE: CASE EVENT DATE: 20170101
